FAERS Safety Report 6195080-X (Version None)
Quarter: 2009Q2

REPORT INFORMATION
  Report Type: 
  Country: None (occurrence: None)
  Receive Date: 20090519
  Receipt Date: 20090514
  Transmission Date: 20091009
  Serious: Yes (Hospitalization)
  Sender: FDA-Public Use
  Company Number: BG-ASTRAZENECA-2009SE01780

PATIENT
  Age: 55 Year
  Sex: Male

DRUGS (1)
  1. ATACAND [Suspect]
     Indication: ESSENTIAL HYPERTENSION
     Route: 048
     Dates: start: 20090111, end: 20090210

REACTIONS (2)
  - FACE OEDEMA [None]
  - PRURITUS [None]
